FAERS Safety Report 7871875-9 (Version None)
Quarter: 2011Q4

REPORT INFORMATION
  Report Type: 
  Country: None (occurrence: None)
  Receive Date: 20111029
  Receipt Date: 20110309
  Transmission Date: 20120403
  Serious: No
  Sender: FDA-Public Use
  Company Number: US-AMGEN-USASP2011013186

PATIENT
  Age: 64 Year
  Sex: Male

DRUGS (1)
  1. ENBREL [Suspect]
     Indication: PSORIASIS
     Dosage: 50 MG, QWK
     Dates: start: 20110210

REACTIONS (6)
  - SKIN EXFOLIATION [None]
  - SKIN HAEMORRHAGE [None]
  - ARTHRALGIA [None]
  - DRY SKIN [None]
  - INJECTION SITE RASH [None]
  - INJECTION SITE HAEMATOMA [None]
